FAERS Safety Report 7472869-8 (Version None)
Quarter: 2011Q2

REPORT INFORMATION
  Report Type: 
  Country: None (occurrence: None)
  Receive Date: 20110511
  Receipt Date: 20110505
  Transmission Date: 20111010
  Serious: Yes (Death)
  Sender: FDA-Public Use
  Company Number: US-PFIZER INC-US-WYE-H13727710

PATIENT
  Age: 28 Year
  Sex: Female

DRUGS (8)
  1. AZITHROMYCIN [Suspect]
     Dosage: UNK
     Route: 065
     Dates: start: 20080101, end: 20080101
  2. METRONIDAZOLE [Suspect]
     Dosage: UNK
     Route: 065
     Dates: start: 20080101, end: 20080101
  3. IBUPROFEN [Suspect]
     Dosage: UNK
     Route: 065
     Dates: start: 20080101, end: 20080101
  4. ACYCLOVIR [Suspect]
     Dosage: UNK
     Route: 065
     Dates: start: 20080101, end: 20080101
  5. PSEUDOEPHEDRINE HCL [Suspect]
     Dosage: UNK
     Route: 065
     Dates: start: 20080101, end: 20080101
  6. OPIOIDS [Suspect]
     Dosage: UNK
     Route: 065
     Dates: start: 20080101, end: 20080101
  7. GUAIFENESIN [Suspect]
     Dosage: UNK
     Route: 065
     Dates: start: 20080101, end: 20080101
  8. CARISOPRODOL [Suspect]
     Dosage: UNK
     Route: 065
     Dates: start: 20080101, end: 20080101

REACTIONS (3)
  - DEATH [None]
  - CARDIAC ARREST [None]
  - RESPIRATORY ARREST [None]
